FAERS Safety Report 4472614-4 (Version None)
Quarter: 2004Q4

REPORT INFORMATION
  Report Type: 
  Country: None (occurrence: None)
  Receive Date: 20041008
  Receipt Date: 20040923
  Transmission Date: 20050328
  Serious: Yes (Disabling)
  Sender: FDA-Public Use
  Company Number: 8947

PATIENT
  Sex: Male

DRUGS (8)
  1. METHOTREXATE [Suspect]
     Indication: ACUTE LYMPHOCYTIC LEUKAEMIA
     Dosage: 20 MG WEEKLY PO
     Route: 048
  2. MOPRAL [Suspect]
     Dosage: 20 MG NOCTE PO
     Route: 048
     Dates: start: 20021201
  3. PURINETHOL [Concomitant]
  4. BACTRIM [Concomitant]
  5. PANTOPRAZOLE [Concomitant]
  6. MORPHINE [Concomitant]
  7. CELEBREX [Concomitant]
  8. NEURONTIN [Concomitant]

REACTIONS (9)
  - ARTHRALGIA [None]
  - BRONCHITIS [None]
  - CONFUSIONAL STATE [None]
  - DRUG TOLERANCE DECREASED [None]
  - GASTRIC DISORDER [None]
  - MYALGIA [None]
  - MYOSITIS [None]
  - PAIN [None]
  - TRANSAMINASES INCREASED [None]
